FAERS Safety Report 7520895-2 (Version None)
Quarter: 2011Q2

REPORT INFORMATION
  Report Type: 
  Country: None (occurrence: None)
  Receive Date: 20110603
  Receipt Date: 20101122
  Transmission Date: 20111010
  Serious: Yes (Other)
  Sender: FDA-Public Use
  Company Number: US-BAYER-201033363NA

PATIENT
  Age: 58 Year
  Sex: Male
  Weight: 195 kg

DRUGS (7)
  1. CARDENE [Concomitant]
  2. HYDROCHLOROTHIAZIDE [Concomitant]
  3. NEXAVAR [Suspect]
     Indication: HEPATIC NEOPLASM MALIGNANT
     Dosage: 800 MG, QD
     Route: 048
     Dates: start: 20100827
  4. JANUVIA [Concomitant]
     Indication: TYPE 2 DIABETES MELLITUS
  5. ANTIGOUT PREPARATIONS [Concomitant]
  6. DIURETICS [Concomitant]
     Indication: ASCITES
     Dosage: UNK
     Dates: start: 20100801
  7. METFORMIN HCL [Concomitant]
     Indication: TYPE 2 DIABETES MELLITUS

REACTIONS (6)
  - NAUSEA [None]
  - HEPATIC NEOPLASM MALIGNANT [None]
  - DIARRHOEA [None]
  - DECREASED APPETITE [None]
  - PAIN IN EXTREMITY [None]
  - WEIGHT DECREASED [None]
